FAERS Safety Report 9642098 (Version 1)
Quarter: 2013Q4

REPORT INFORMATION
  Report Type: Spontaneous
  Country: US (occurrence: US)
  Receive Date: 20131023
  Receipt Date: 20131023
  Transmission Date: 20140711
  Serious: Yes (Other)
  Sender: FDA-Public Use
  Company Number: US-TEVA-439513USA

PATIENT
  Age: 39 Year
  Sex: Female

DRUGS (1)
  1. COPAXONE [Suspect]
     Dates: start: 2011, end: 201105

REACTIONS (5)
  - Anaphylactic reaction [Recovered/Resolved]
  - Generalised erythema [Recovered/Resolved]
  - Palpitations [Recovered/Resolved]
  - Oxygen saturation decreased [Recovered/Resolved]
  - Heart rate increased [Recovered/Resolved]
